FAERS Safety Report 23918288 (Version 1)
Quarter: 2024Q2

REPORT INFORMATION
  Report Type: Spontaneous
  Country: US (occurrence: US)
  Receive Date: 20240530
  Receipt Date: 20240530
  Transmission Date: 20240716
  Serious: No
  Sender: FDA-Public Use
  Company Number: US-JNJFOC-20240558885

PATIENT
  Age: 25 Year

DRUGS (3)
  1. RISPERIDONE [Suspect]
     Active Substance: RISPERIDONE
     Indication: Schizoaffective disorder
     Dosage: 4MG TABLET IN THE MORNING AND 4MG TABLET IN THE EVENING
     Route: 048
  2. RISPERIDONE [Suspect]
     Active Substance: RISPERIDONE
     Indication: Bipolar disorder
  3. BENADRYL [Suspect]
     Active Substance: DIPHENHYDRAMINE HYDROCHLORIDE
     Indication: Product used for unknown indication
     Route: 065

REACTIONS (2)
  - Headache [Unknown]
  - Treatment noncompliance [Unknown]

NARRATIVE: CASE EVENT DATE: 20240501
